FAERS Safety Report 9513724 (Version 2)
Quarter: 2013Q4

REPORT INFORMATION
  Report Type: Spontaneous
  Country: US (occurrence: US)
  Receive Date: 20130910
  Receipt Date: 20131106
  Transmission Date: 20140711
  Serious: Yes (Other)
  Sender: FDA-Public Use
  Company Number: US-BAYER-2013-109213

PATIENT
  Age: 25 Year
  Sex: Female
  Weight: 91 kg

DRUGS (1)
  1. MIRENA [Suspect]
     Indication: CONTRACEPTION
     Dosage: 20 MCG/24HR, CONT
     Route: 015
     Dates: start: 20120316, end: 20130220

REACTIONS (8)
  - Uterine perforation [None]
  - Large intestine perforation [None]
  - Abdominal pain [None]
  - Pelvic pain [None]
  - Injury [None]
  - Emotional distress [None]
  - Depression [None]
  - Anxiety [None]
